FAERS Safety Report 6385175-X (Version None)
Quarter: 2009Q4

REPORT INFORMATION
  Report Type: 
  Country: None (occurrence: None)
  Receive Date: 20091002
  Receipt Date: 20081202
  Transmission Date: 20100525
  Serious: No
  Sender: FDA-Public Use
  Company Number: US-ASTRAZENECA-2006UW16214

PATIENT
  Age: 59 Year
  Sex: Female
  Weight: 53.1 kg

DRUGS (4)
  1. ARIMIDEX [Suspect]
     Indication: BREAST CANCER
     Route: 048
     Dates: start: 20050101
  2. ARMOUR THYROID [Concomitant]
  3. FISH OILS [Concomitant]
  4. GLUCOSAMINE [Concomitant]

REACTIONS (3)
  - ARTHRALGIA [None]
  - PARAESTHESIA [None]
  - URINARY INCONTINENCE [None]
